FAERS Safety Report 16347336 (Version 1)
Quarter: 2019Q2

REPORT INFORMATION
  Report Type: Spontaneous
  Country: US (occurrence: US)
  Receive Date: 20190522
  Receipt Date: 20190522
  Transmission Date: 20190711
  Serious: No
  Sender: FDA-Public Use
  Company Number: None

PATIENT
  Age: 57 Year
  Sex: Female
  Weight: 83.25 kg

DRUGS (5)
  1. ADDERALL [Concomitant]
     Active Substance: AMPHETAMINE ASPARTATE\AMPHETAMINE SULFATE\DEXTROAMPHETAMINE SACCHARATE\DEXTROAMPHETAMINE SULFATE
  2. SUMATRIPTAN TABLETS USP [Suspect]
     Active Substance: SUMATRIPTAN
     Indication: MIGRAINE
  3. WELLBUTRIN (GENERIC) 150 MG [Concomitant]
     Active Substance: BUPROPION HYDROCHLORIDE
  4. LIPITOR (GENERIC) [Concomitant]
  5. COENZYME Q10 [Concomitant]
     Active Substance: UBIDECARENONE

REACTIONS (2)
  - Back pain [None]
  - Product physical issue [None]

NARRATIVE: CASE EVENT DATE: 20190521
